FAERS Safety Report 6258051-0 (Version None)
Quarter: 2009Q3

REPORT INFORMATION
  Report Type: 
  Country: None (occurrence: None)
  Receive Date: 20090702
  Receipt Date: 20090625
  Transmission Date: 20100115
  Serious: Yes (Death)
  Sender: FDA-Public Use
  Company Number: TCI2009A02362

PATIENT
  Age: 52 Year
  Sex: Male

DRUGS (6)
  1. ACTOS [Suspect]
     Indication: BLOOD GLUCOSE ABNORMAL
     Dosage: 15 MG (15 MG, 1 D)
     Route: 048
     Dates: start: 20090106, end: 20090602
  2. BASEN (VOGLIBOSE) [Concomitant]
  3. CANDESARTAN CILEXETIL [Concomitant]
  4. AMARYL [Concomitant]
  5. TANATRIL (IMIDAPRIL HYDROCHLORIDE) [Concomitant]
  6. AMLODIPINE BESYLATE [Concomitant]

REACTIONS (1)
  - ROAD TRAFFIC ACCIDENT [None]
